FAERS Safety Report 20151670 (Version 1)
Quarter: 2021Q4

REPORT INFORMATION
  Report Type: Spontaneous
  Country: US (occurrence: US)
  Receive Date: 20211206
  Receipt Date: 20211206
  Transmission Date: 20220303
  Serious: No
  Sender: FDA-Public Use
  Company Number: US-TEVA-2021-US-1977581

PATIENT
  Age: 51 Year
  Sex: Female
  Weight: 127.01 kg

DRUGS (7)
  1. AJOVY [Suspect]
     Active Substance: FREMANEZUMAB-VFRM
     Indication: Migraine
     Dosage: 225/1.5 MG/ML
     Route: 065
     Dates: start: 2020
  2. AJOVY [Suspect]
     Active Substance: FREMANEZUMAB-VFRM
  3. SINGULAIR [Concomitant]
     Active Substance: MONTELUKAST SODIUM
     Route: 065
  4. ZYRTEC [Concomitant]
     Active Substance: CETIRIZINE HYDROCHLORIDE
     Route: 065
  5. GABAPENTIN [Concomitant]
     Active Substance: GABAPENTIN
     Route: 065
  6. HYZAAR [Concomitant]
     Active Substance: HYDROCHLOROTHIAZIDE\LOSARTAN POTASSIUM
     Route: 065
  7. PRILOSEC [Concomitant]
     Active Substance: OMEPRAZOLE MAGNESIUM
     Route: 065

REACTIONS (1)
  - Food allergy [Unknown]

NARRATIVE: CASE EVENT DATE: 20211001
